APPROVED DRUG PRODUCT: SODIUM ROSE BENGAL I 131
Active Ingredient: ROSE BENGAL SODIUM I-131
Strength: 0.5mCi/ML
Dosage Form/Route: INJECTABLE;INJECTION
Application: N017318 | Product #001
Applicant: SORIN BIOMEDICA SPA
Approved: Approved Prior to Jan 1, 1982 | RLD: No | RS: No | Type: DISCN